FAERS Safety Report 25119776 (Version 2)
Quarter: 2025Q2

REPORT INFORMATION
  Report Type: Report from Study
  Country: KR (occurrence: KR)
  Receive Date: 20250325
  Receipt Date: 20250428
  Transmission Date: 20250717
  Serious: Yes (Hospitalization, Other)
  Sender: MERCK SHARP & DOHME LLC
  Company Number: KR-009507513-2265792

PATIENT
  Sex: Female

DRUGS (3)
  1. KEYTRUDA [Suspect]
     Active Substance: PEMBROLIZUMAB
     Indication: Breast cancer female
     Dates: start: 20250220, end: 20250220
  2. KEYTRUDA [Suspect]
     Active Substance: PEMBROLIZUMAB
     Indication: Breast cancer female
     Dates: start: 20250313, end: 20250313
  3. KEYTRUDA [Suspect]
     Active Substance: PEMBROLIZUMAB
     Indication: Breast cancer female
     Dates: start: 20250403, end: 20250403

REACTIONS (3)
  - Hospitalisation [Recovered/Resolved]
  - Radiotherapy [Recovered/Resolved]
  - Bladder catheterisation [Unknown]

NARRATIVE: CASE EVENT DATE: 20250101
